FAERS Safety Report 23846082 (Version 3)
Quarter: 2024Q3

REPORT INFORMATION
  Report Type: Other
  Country: US (occurrence: US)
  Receive Date: 20240512
  Receipt Date: 20240718
  Transmission Date: 20241017
  Serious: No
  Sender: TRAVERE THERAPEUTICS
  Company Number: US-TRAVERE-2024TVT00399

PATIENT
  Age: 45 Year
  Sex: Male

DRUGS (6)
  1. FILSPARI [Suspect]
     Active Substance: SPARSENTAN
     Indication: IgA nephropathy
     Route: 048
     Dates: start: 20240416
  2. AMLODIPINE [Suspect]
     Active Substance: AMLODIPINE BESYLATE
     Indication: Product used for unknown indication
  3. VIAGRA [Concomitant]
     Active Substance: SILDENAFIL CITRATE
  4. METFORMIN ER OSMOTIC [Concomitant]
  5. FARXIGA [Concomitant]
     Active Substance: DAPAGLIFLOZIN PROPANEDIOL
  6. CRESTOR [Concomitant]
     Active Substance: ROSUVASTATIN CALCIUM

REACTIONS (5)
  - Dizziness [Unknown]
  - Pain [Unknown]
  - Hypotension [Recovered/Resolved]
  - Tremor [Recovered/Resolved]
  - Anger [Recovered/Resolved]
